FAERS Safety Report 9467849 (Version 2)
Quarter: 2013Q3

REPORT INFORMATION
  Report Type: Spontaneous
  Country: US (occurrence: US)
  Receive Date: 20130821
  Receipt Date: 20130821
  Transmission Date: 20140515
  Serious: No
  Sender: FDA-Public Use
  Company Number: US-JNJFOC-20130803344

PATIENT
  Sex: Male

DRUGS (1)
  1. INVEGA [Suspect]
     Indication: ABNORMAL BEHAVIOUR
     Route: 065
     Dates: start: 200703

REACTIONS (1)
  - Aggression [Unknown]
